FAERS Safety Report 24412797 (Version 1)
Quarter: 2024Q4

REPORT INFORMATION
  Report Type: Report from Study
  Country: US (occurrence: US)
  Receive Date: 20241008
  Receipt Date: 20241008
  Transmission Date: 20250115
  Serious: Yes (Death)
  Sender: SANOFI AVENTIS
  Company Number: US-SA-2024SA280412

PATIENT
  Age: 86 Year
  Sex: Male

DRUGS (10)
  1. DUPILUMAB [Suspect]
     Active Substance: DUPILUMAB
     Indication: Dermatitis atopic
     Dosage: UNKNOWN LOADING DOSE, 1X
     Route: 058
     Dates: start: 20240905, end: 20240905
  2. DUPILUMAB [Suspect]
     Active Substance: DUPILUMAB
     Dosage: 300 MG, QOW
     Route: 058
     Dates: start: 202409, end: 20240924
  3. GLUCOSAMINE [Concomitant]
     Active Substance: GLUCOSAMINE
  4. VITAMIN D NOS [Concomitant]
     Active Substance: CHOLECALCIFEROL\ERGOCALCIFEROL
  5. ELIQUIS [Concomitant]
     Active Substance: APIXABAN
  6. METOPROLOL SUCCINATE [Concomitant]
     Active Substance: METOPROLOL SUCCINATE
  7. FLOMAX [Concomitant]
     Active Substance: TAMSULOSIN HYDROCHLORIDE
  8. METOLAZONE [Concomitant]
     Active Substance: METOLAZONE
  9. ALLOPURINOL [Concomitant]
     Active Substance: ALLOPURINOL
  10. TORSEMIDE [Concomitant]
     Active Substance: TORSEMIDE

REACTIONS (1)
  - Rash [Fatal]

NARRATIVE: CASE EVENT DATE: 20240901
